FAERS Safety Report 4399191-0 (Version None)
Quarter: 2004Q3

REPORT INFORMATION
  Report Type: 
  Country: None (occurrence: None)
  Receive Date: 20040715
  Receipt Date: 20040715
  Transmission Date: 20050211
  Serious: Yes (Life-Threatening, Hospitalization)
  Sender: FDA-Public Use
  Company Number: None

PATIENT
  Age: 83 Year
  Sex: Male
  Weight: 46 kg

DRUGS (8)
  1. FUROSEMIDE [Suspect]
     Indication: OEDEMA
     Dosage: FUROSEMIDE 80 MG PO QD
     Route: 048
     Dates: start: 20040624, end: 20040701
  2. ALENDRONATE SODIUM [Concomitant]
  3. CALCIUM/VITAMIN D [Concomitant]
  4. DOCUSATE NA [Concomitant]
  5. SYNTHROID [Concomitant]
  6. MULTI-VITAMIN [Concomitant]
  7. LORTAB [Concomitant]
  8. NAPROXEN [Concomitant]

REACTIONS (1)
  - DERMATITIS BULLOUS [None]
